FAERS Safety Report 9920090 (Version 1)
Quarter: 2014Q1

REPORT INFORMATION
  Report Type: Spontaneous
  Country: TW (occurrence: TW)
  Receive Date: 20140224
  Receipt Date: 20140224
  Transmission Date: 20141002
  Serious: Yes (Other)
  Sender: FDA-Public Use
  Company Number: TW-ACTAVIS-2014-02796

PATIENT
  Age: 62 Year
  Sex: Female

DRUGS (6)
  1. ARIPIPRAZOLE (UNKNOWN) [Suspect]
     Indication: MAJOR DEPRESSION
     Dosage: 2.5 MG, QOD
     Route: 065
  2. ARIPIPRAZOLE (UNKNOWN) [Interacting]
     Dosage: 5 MG, QOD
     Route: 065
  3. FLUOXETINE (UNKNOWN) [Interacting]
     Indication: MAJOR DEPRESSION
     Dosage: 60 MG, DAILY
     Route: 065
  4. FLUOXETINE (UNKNOWN) [Interacting]
     Dosage: 40 MG, DAILY
     Route: 065
  5. PROPRANOLOL [Concomitant]
     Indication: HYPERTENSION
     Dosage: 30 MG, DAILY
     Route: 065
  6. CLONAZEPAM [Concomitant]
     Indication: PRODUCT USED FOR UNKNOWN INDICATION
     Dosage: 2 MG, DAILY
     Route: 065

REACTIONS (2)
  - Hypomania [Recovered/Resolved]
  - Inhibitory drug interaction [Unknown]
